FAERS Safety Report 23982451 (Version 1)
Quarter: 2024Q2

REPORT INFORMATION
  Report Type: Spontaneous
  Country: ES (occurrence: ES)
  Receive Date: 20240617
  Receipt Date: 20240617
  Transmission Date: 20240716
  Serious: Yes (Other)
  Sender: FDA-Public Use
  Company Number: ES-JNJFOC-20240250509

PATIENT

DRUGS (7)
  1. CABOTEGRAVIR [Suspect]
     Active Substance: CABOTEGRAVIR
     Indication: HIV infection
     Dosage: 600 MG, Q4W (FIRST ADMINISTRATION)
     Route: 030
     Dates: start: 20230328
  2. CABOTEGRAVIR [Suspect]
     Active Substance: CABOTEGRAVIR
     Dosage: 600 MG, Q4W (SECOND ADMINISTRATION)
     Route: 030
  3. CABOTEGRAVIR [Suspect]
     Active Substance: CABOTEGRAVIR
     Dosage: 600 MG, Q8W (LAST ADMINISTRATION DATE: 13-FEB-2024 (SEVENTH ADMINISTRATION))
     Route: 030
     Dates: end: 20240213
  4. RILPIVIRINE [Suspect]
     Active Substance: RILPIVIRINE
     Indication: HIV infection
     Dosage: 900 MG, Q4W (FIRST ADMINISTRATION)
     Route: 030
     Dates: start: 20230328
  5. RILPIVIRINE [Suspect]
     Active Substance: RILPIVIRINE
     Dosage: 900 MG, Q4W (SECOND ADMINISTRATION)
     Route: 030
  6. RILPIVIRINE [Suspect]
     Active Substance: RILPIVIRINE
     Dosage: 900 MG, Q8W (LAST ADMINISTRATION DATE: 13-FEB-2024 (SEVENTH ADMINISTRATION))
     Route: 030
     Dates: end: 20240213
  7. AMOXICILLIN [Concomitant]
     Active Substance: AMOXICILLIN
     Indication: Tooth abscess
     Dosage: UNK
     Route: 065

REACTIONS (2)
  - Blood catecholamines abnormal [Recovered/Resolved]
  - Pharyngotonsillitis [Unknown]

NARRATIVE: CASE EVENT DATE: 20240213
